FAERS Safety Report 23130860 (Version 2)
Quarter: 2023Q4

REPORT INFORMATION
  Report Type: Spontaneous
  Country: CN (occurrence: CN)
  Receive Date: 20231031
  Receipt Date: 20231102
  Transmission Date: 20240110
  Serious: Yes (Hospitalization, Other)
  Sender: FDA-Public Use
  Company Number: CN-ORGANON-O2310CHN003576

PATIENT
  Age: 30 Year
  Sex: Female
  Weight: 62.8 kg

DRUGS (10)
  1. FOLLITROPIN BETA [Suspect]
     Active Substance: FOLLITROPIN BETA
     Indication: Ovulation induction
     Dosage: 120IU, QD
     Route: 058
     Dates: start: 20230914, end: 20230918
  2. FOLLITROPIN BETA [Suspect]
     Active Substance: FOLLITROPIN BETA
  3. MENOTROPINS [Suspect]
     Active Substance: MENOTROPINS
     Indication: Ovulation induction
     Dosage: 75IU, QD
     Route: 030
     Dates: start: 20230919, end: 20230921
  4. MENOTROPINS [Suspect]
     Active Substance: MENOTROPINS
     Dosage: 150IU, QD
     Route: 030
     Dates: start: 20230925, end: 20230925
  5. CHORIONIC GONADOTROPHIN [Suspect]
     Active Substance: CHORIOGONADOTROPIN ALFA
     Indication: Ovulation induction
     Dosage: 10000IU, QD
     Route: 030
     Dates: start: 20230925, end: 20230925
  6. GONAL-F [Suspect]
     Active Substance: FOLLITROPIN
     Indication: Ovulation induction
     Dosage: 150IU, QD
     Route: 058
     Dates: start: 20230919, end: 20230924
  7. LUVERIS [Suspect]
     Active Substance: LUTROPIN ALFA
     Indication: Ovulation induction
     Dosage: 75IU, QD
     Dates: start: 20230922, end: 20230924
  8. SODIUM CHLORIDE [Concomitant]
     Active Substance: SODIUM CHLORIDE
     Indication: Vehicle solution use
     Dosage: 2ML, QD
     Route: 030
     Dates: start: 20230919, end: 20230921
  9. SODIUM CHLORIDE [Concomitant]
     Active Substance: SODIUM CHLORIDE
     Dosage: 2ML, QD
     Route: 030
     Dates: start: 20230925, end: 20230925
  10. STERILE WATER FOR INJECTION [Concomitant]
     Active Substance: WATER
     Indication: Vehicle solution use
     Dosage: 1ML, QD
     Route: 058
     Dates: start: 20230919, end: 20230924

REACTIONS (5)
  - Ovarian hyperstimulation syndrome [Recovering/Resolving]
  - Abdominal distension [Recovering/Resolving]
  - Abdominal pain [Recovering/Resolving]
  - Nausea [Recovering/Resolving]
  - Vomiting [Recovering/Resolving]

NARRATIVE: CASE EVENT DATE: 20231007
